FAERS Safety Report 9767505 (Version 3)
Quarter: 2014Q1

REPORT INFORMATION
  Report Type: Report from Study
  Country: US (occurrence: US)
  Receive Date: 20131217
  Receipt Date: 20140213
  Transmission Date: 20141002
  Serious: Yes (Life-Threatening, Hospitalization, Other)
  Sender: FDA-Public Use
  Company Number: PHEH2013US023425

PATIENT
  Age: 78 Year
  Sex: Female
  Weight: 66.21 kg

DRUGS (2)
  1. GLEEVEC [Suspect]
     Indication: CHRONIC MYELOID LEUKAEMIA
     Dosage: 400 MG, QD
     Route: 048
  2. GLEEVEC [Suspect]
     Dosage: 400 MG, DAILY TABLET
     Route: 048
     Dates: start: 20110209

REACTIONS (5)
  - Ventricular tachycardia [Recovered/Resolved]
  - Pneumonia [Unknown]
  - Cardiac arrest [Unknown]
  - Cardiac disorder [Unknown]
  - Neoplasm [Unknown]
